FAERS Safety Report 4326292-5 (Version None)
Quarter: 2004Q1

REPORT INFORMATION
  Report Type: 
  Country: None (occurrence: None)
  Receive Date: 20040324
  Receipt Date: 20040309
  Transmission Date: 20041129
  Serious: Yes (Other)
  Sender: FDA-Public Use
  Company Number: USA040361270

PATIENT
  Age: 55 Year
  Sex: Female
  Weight: 94 kg

DRUGS (1)
  1. HUMALOG [Suspect]
     Dosage: 36 U DAY
     Dates: start: 20020101

REACTIONS (3)
  - BLOOD GLUCOSE INCREASED [None]
  - OBSTRUCTION [None]
  - PHARMACEUTICAL PRODUCT COMPLAINT [None]
